FAERS Safety Report 5199800-2 (Version None)
Quarter: 2006Q4

REPORT INFORMATION
  Report Type: 
  Country: None (occurrence: None)
  Receive Date: 20061229
  Receipt Date: 20061213
  Transmission Date: 20070319
  Serious: Yes (Hospitalization)
  Sender: FDA-Public Use
  Company Number: 2006SP007455

PATIENT
  Age: 65 Year
  Sex: Male

DRUGS (2)
  1. REBETOL [Suspect]
     Indication: HEPATITIS C
     Dates: start: 20061001, end: 20061101
  2. PEG-INTRON [Suspect]
     Indication: HEPATITIS C
     Dosage: ;QW;
     Dates: start: 20061001, end: 20061101

REACTIONS (3)
  - INTERVERTEBRAL DISC PROTRUSION [None]
  - MONONEURITIS [None]
  - MUSCLE ATROPHY [None]
